FAERS Safety Report 9544307 (Version 2)
Quarter: 2013Q3

REPORT INFORMATION
  Report Type: Spontaneous
  Country: US (occurrence: US)
  Receive Date: 20130923
  Receipt Date: 20130923
  Transmission Date: 20140515
  Serious: No
  Sender: FDA-Public Use
  Company Number: US-GLAXOSMITHKLINE-A0968344A

PATIENT
  Age: 25 Year
  Sex: Female

DRUGS (2)
  1. ABREVA [Suspect]
     Indication: PRODUCT USED FOR UNKNOWN INDICATION
     Route: 061
     Dates: start: 20120218
  2. VALTREX [Concomitant]

REACTIONS (1)
  - Exposure during pregnancy [Unknown]
